FAERS Safety Report 10043954 (Version 2)
Quarter: 2014Q1

REPORT INFORMATION
  Report Type: Spontaneous
  Country: US (occurrence: US)
  Receive Date: 20140328
  Receipt Date: 20140328
  Transmission Date: 20141002
  Serious: No
  Sender: FDA-Public Use
  Company Number: US-MYLANLABS-2013S1011021

PATIENT
  Age: 63 Year
  Sex: Female
  Weight: 68.95 kg

DRUGS (7)
  1. EMSAM (SELEGILINE TRANSDERMAL SYSTEM) [Suspect]
     Indication: DEPRESSION
     Route: 062
     Dates: start: 20130429
  2. LORAZEPAM TABLETS, USP [Suspect]
     Indication: ANXIETY
     Route: 048
     Dates: end: 201301
  3. LORAZEPAM TABLETS, USP [Suspect]
     Indication: ANXIETY
     Dosage: 0.5MG THREE TIMES A DAY AND 1MG AT BEDTIME
     Route: 048
     Dates: start: 201301
  4. PRILOSEC [Concomitant]
  5. OMEPRAZOLE [Concomitant]
     Indication: ABDOMINAL OPERATION
  6. RANITIDINE [Concomitant]
     Indication: ABDOMINAL OPERATION
  7. LIPITOR [Concomitant]
     Indication: BLOOD CHOLESTEROL

REACTIONS (2)
  - Fatigue [Not Recovered/Not Resolved]
  - Asthenia [Not Recovered/Not Resolved]
